FAERS Safety Report 5330074-5 (Version None)
Quarter: 2007Q2

REPORT INFORMATION
  Report Type: 
  Country: None (occurrence: None)
  Receive Date: 20070521
  Receipt Date: 20070511
  Transmission Date: 20071010
  Serious: Yes (Hospitalization)
  Sender: FDA-Public Use
  Company Number: FR-ROCHE-497193

PATIENT
  Age: 59 Year
  Sex: Female

DRUGS (4)
  1. CAPECITABINE [Suspect]
     Indication: METASTATIC GASTRIC CANCER
     Dosage: DAYS 2 TO 15 EVERY 21 DAYS AS PER SYNOPSIS
     Route: 065
  2. IRINOTECAN HCL [Suspect]
     Indication: METASTATIC GASTRIC CANCER
     Dosage: FREQUENCY AS PER SYNOPSIS
     Route: 065
  3. FOLINIC ACID [Suspect]
     Indication: METASTATIC GASTRIC CANCER
     Dosage: FREQUENCY AS PER SYNOPSIS
     Route: 065
  4. FLUOROURACIL [Suspect]
     Indication: METASTATIC GASTRIC CANCER
     Dosage: FREQUENCY AS PER SYNOPSIS 400 MG/M2 AS A BOLUS OVER 10 MINUTES AND 2400 MG/M2 AS A CONTINUOUS INFUS+
     Route: 065

REACTIONS (1)
  - COLITIS ISCHAEMIC [None]
